FAERS Safety Report 4751736-4 (Version None)
Quarter: 2005Q3

REPORT INFORMATION
  Report Type: 
  Country: None (occurrence: None)
  Receive Date: 20050824
  Receipt Date: 20050228
  Transmission Date: 20060218
  Serious: Yes (Hospitalization)
  Sender: FDA-Public Use
  Company Number: JP-SANOFI-SYNTHELABO-F01200500373

PATIENT
  Sex: Female
  Weight: 55 kg

DRUGS (68)
  1. CLOPIDOGREL [Suspect]
     Indication: ELECTROCARDIOGRAM ST SEGMENT ELEVATION
     Dosage: LOADING DOSE 300 MG FOLLOWED BY 75 MG DAILY
     Route: 048
     Dates: start: 20050214, end: 20050310
  2. TICLOPIDINE HCL [Suspect]
  3. ISOSORBIDE MONONITRATE [Concomitant]
     Indication: ANGINA PECTORIS
     Dosage: 80 MG
     Route: 048
     Dates: start: 20050218, end: 20050303
  4. ADALAT [Concomitant]
     Indication: HYPERTENSION
     Route: 048
     Dates: start: 20050222, end: 20050222
  5. AMLODIN [Concomitant]
     Indication: HYPERTENSION
     Dosage: 5 MG
     Route: 048
     Dates: start: 20050213, end: 20050215
  6. AMLODIN [Concomitant]
     Dosage: 5 MG
     Route: 048
     Dates: start: 20050218, end: 20050223
  7. AMLODIN [Concomitant]
     Route: 048
     Dates: start: 20050220, end: 20050224
  8. AMLODIN [Concomitant]
     Route: 048
     Dates: start: 20050225, end: 20050303
  9. ALDACTONE [Concomitant]
     Indication: POLYURIA
     Dosage: 25 MG
     Route: 048
     Dates: start: 20050222, end: 20050225
  10. GLIMICRON [Concomitant]
     Dosage: 40 MG
     Route: 048
     Dates: start: 20050215, end: 20050220
  11. GLIMICRON [Concomitant]
     Dosage: 40 MG
     Route: 048
     Dates: start: 20050222, end: 20050227
  12. KREMEZIN [Concomitant]
     Indication: AZOTAEMIA
     Route: 048
     Dates: start: 20050214, end: 20050216
  13. KREMEZIN [Concomitant]
     Route: 048
     Dates: start: 20050228, end: 20050303
  14. SIGMART [Concomitant]
     Indication: ANGINA PECTORIS
     Dosage: 20 MG
     Route: 048
     Dates: start: 20050221, end: 20050303
  15. CEFZON [Concomitant]
     Indication: INFECTION PROPHYLAXIS
     Dosage: 900 MG
     Route: 048
     Dates: start: 20050213, end: 20050215
  16. SERENACE [Concomitant]
     Indication: RESTLESSNESS
     Dosage: 0.75 MG
     Route: 048
     Dates: start: 20050215, end: 20050224
  17. NU-LOTAN [Concomitant]
     Indication: HYPERTENSION
     Dosage: 25 MG
     Route: 048
     Dates: start: 20050213, end: 20050215
  18. NU-LOTAN [Concomitant]
     Route: 048
     Dates: start: 20050224, end: 20050227
  19. NU-LOTAN [Concomitant]
     Dosage: 25 MG
     Route: 048
     Dates: start: 20050222, end: 20050225
  20. NU-LOTAN [Concomitant]
     Dosage: 25 MG
     Route: 048
     Dates: start: 20050217, end: 20050303
  21. ASPIRIN [Concomitant]
     Indication: THROMBOSIS
     Dosage: 100 MG
     Route: 048
     Dates: start: 20050217, end: 20050305
  22. FERROMIA [Concomitant]
     Indication: ANAEMIA
     Dosage: 100 MG
     Route: 048
     Dates: start: 20050214, end: 20050216
  23. FERROMIA [Concomitant]
     Dosage: 100 MG
     Route: 048
     Dates: start: 20050218, end: 20050223
  24. MAGNESIUM OXIDE [Concomitant]
     Indication: CONSTIPATION
     Dosage: 4.5 MG
     Route: 048
     Dates: start: 20050217, end: 20050223
  25. MAGNESIUM OXIDE [Concomitant]
     Dosage: 4.5 MG
     Route: 048
     Dates: start: 20050225, end: 20050303
  26. YODEL S [Concomitant]
     Indication: CONSTIPATION
     Route: 048
     Dates: start: 20050217
  27. LIPITOR [Concomitant]
     Indication: HYPERLIPIDAEMIA
     Dosage: 10 MG
     Route: 048
     Dates: start: 20050215, end: 20050303
  28. GLUCOSE [Concomitant]
     Indication: PROPHYLAXIS
     Route: 048
     Dates: start: 20050221
  29. LASIX [Concomitant]
     Indication: POLYURIA
     Route: 042
     Dates: start: 20050215, end: 20050216
  30. LASIX [Concomitant]
     Route: 048
     Dates: start: 20050222, end: 20050225
  31. LECICARBON [Concomitant]
     Indication: CONSTIPATION
     Dosage: 1 DOSE FORMS AS REQUIRED
     Route: 054
     Dates: start: 20050218
  32. MUCOFILIN [Concomitant]
     Indication: PRODUCTIVE COUGH
     Dosage: 352.4 MG/ML
     Route: 048
     Dates: start: 20050216, end: 20050302
  33. MUCOFILIN [Concomitant]
     Dosage: 352.4 MG/ML
     Route: 048
     Dates: start: 20050304, end: 20050307
  34. HEPARIN SODIUM [Concomitant]
     Indication: THROMBOSIS PROPHYLAXIS
     Dosage: 10000 IU
     Route: 041
     Dates: start: 20050215, end: 20050216
  35. HEPARIN SODIUM [Concomitant]
     Dosage: 5000 IU
     Route: 010
     Dates: start: 20050305, end: 20050306
  36. HEPARIN SODIUM [Concomitant]
     Dosage: 5000 IU
     Route: 010
     Dates: start: 20050224, end: 20050226
  37. HEPARIN SODIUM [Concomitant]
     Dosage: 5000 IU
     Route: 010
     Dates: start: 20050301, end: 20050302
  38. HEPARIN SODIUM [Concomitant]
     Dosage: 5000 IU
     Route: 010
     Dates: start: 20050305, end: 20050306
  39. HEPARIN SODIUM [Concomitant]
     Dosage: 5000 IU
     Route: 010
     Dates: start: 20050303, end: 20050304
  40. HEPARIN SODIUM [Concomitant]
     Dosage: 10000 IU
     Route: 041
     Dates: start: 20050216, end: 20050218
  41. GASTER [Concomitant]
     Indication: GASTROINTESTINAL DISORDER
     Dosage: 1 OTHER
     Route: 041
     Dates: start: 20050215, end: 20050216
  42. GASTER [Concomitant]
     Dosage: 1 OTHER
     Route: 041
     Dates: start: 20050305, end: 20050306
  43. GASTER [Concomitant]
     Dosage: 1 OTHER
     Route: 041
     Dates: start: 20050305, end: 20050306
  44. GASTER [Concomitant]
     Dosage: 1 OTHER
     Route: 041
     Dates: start: 20050306, end: 20050307
  45. GASTER [Concomitant]
     Dosage: 1 OTHER
     Route: 041
     Dates: start: 20050301, end: 20050302
  46. GASTER [Concomitant]
     Dosage: 1 OTHER
     Route: 041
     Dates: start: 20050303, end: 20050304
  47. GASTER [Concomitant]
     Dosage: 1 OTHER
     Route: 041
     Dates: start: 20050306, end: 20050307
  48. GASTER [Concomitant]
     Dosage: 1 OTHER
     Route: 041
     Dates: start: 20050224, end: 20050226
  49. NITROGLYCERIN [Concomitant]
     Indication: ANGINA PECTORIS
     Dosage: 150 ML
     Route: 041
     Dates: start: 20050214, end: 20050214
  50. NITROGLYCERIN [Concomitant]
     Dosage: 100 ML
     Route: 041
     Dates: start: 20050224, end: 20050306
  51. NITROGLYCERIN [Concomitant]
     Dosage: 150 ML
     Route: 041
     Dates: start: 20050216, end: 20050222
  52. EPOGIN [Concomitant]
     Indication: ANAEMIA
     Dosage: 1 OTHER
     Route: 058
     Dates: start: 20050215, end: 20050215
  53. EPOGIN [Concomitant]
     Dosage: 1 OTHER
     Route: 058
     Dates: start: 20050222, end: 20050222
  54. EPOGIN [Concomitant]
     Dosage: 1 OTHER
     Route: 058
     Dates: start: 20050301, end: 20050301
  55. CEFAMEZIN [Concomitant]
     Indication: INFECTION PROPHYLAXIS
     Dosage: 1 OTHER
     Route: 041
     Dates: start: 20050216, end: 20050218
  56. BLUTAL [Concomitant]
     Indication: ANAEMIA
     Dosage: 1 OTHER
     Route: 042
     Dates: start: 20050216, end: 20050222
  57. BLUTAL [Concomitant]
     Dosage: 1 OTHER
     Route: 042
     Dates: start: 20050228, end: 20050307
  58. TIENAM [Concomitant]
     Indication: INFECTION PROPHYLAXIS
     Dosage: 1 OTHER
     Route: 041
     Dates: start: 20050223, end: 20050223
  59. HANP [Concomitant]
     Indication: CARDIAC FAILURE
     Dosage: 3 V
     Route: 041
     Dates: start: 20050217, end: 20050223
  60. PAZUCROSS [Concomitant]
     Indication: INFECTION PROPHYLAXIS
     Dosage: 1 OTHER
     Route: 041
     Dates: start: 20050219, end: 20050221
  61. PAZUCROSS [Concomitant]
     Dosage: 1 OTHER
     Route: 042
     Dates: start: 20050302, end: 20050302
  62. CATABON [Concomitant]
     Indication: CARDIAC FAILURE
     Dosage: 1 OTHER
     Route: 041
     Dates: start: 20050218, end: 20050218
  63. CATABON [Concomitant]
     Dosage: 1 OTHER
     Route: 041
     Dates: start: 20050220, end: 20050220
  64. DORMICUM [Concomitant]
     Indication: SEDATIVE THERAPY
     Dosage: 3 OTHER
     Route: 042
     Dates: start: 20050223, end: 20050223
  65. DORMICUM [Concomitant]
     Route: 042
     Dates: start: 20050224, end: 20050303
  66. DORMICUM [Concomitant]
     Dosage: 3 OTHER
     Route: 042
     Dates: start: 20050304, end: 20050304
  67. DORMICUM [Concomitant]
     Dosage: 3 OTHER
     Route: 042
     Dates: start: 20050306, end: 20050306
  68. DORMICUM [Concomitant]
     Dosage: 3 OTHER
     Route: 042
     Dates: start: 20050306, end: 20050306

REACTIONS (7)
  - BLOOD PRESSURE INCREASED [None]
  - CARDIAC FAILURE [None]
  - DIASTOLIC DYSFUNCTION [None]
  - PLEURAL EFFUSION [None]
  - PNEUMONIA [None]
  - RENAL FAILURE CHRONIC [None]
  - RESPIRATORY FAILURE [None]
